FAERS Safety Report 15317753 (Version 4)
Quarter: 2019Q4

REPORT INFORMATION
  Report Type: Report from Study
  Country: US (occurrence: US)
  Receive Date: 20180824
  Receipt Date: 20191119
  Transmission Date: 20200122
  Serious: No
  Sender: FDA-Public Use
  Company Number: PHEH2018US034081

PATIENT
  Age: 4 Year
  Sex: Female

DRUGS (3)
  1. ILARIS [Suspect]
     Active Substance: CANAKINUMAB
     Indication: CRYOPYRIN ASSOCIATED PERIODIC SYNDROME
     Dosage: 75 MG, (EVERY 4 WEEKS)
     Route: 058
     Dates: start: 20180322
  2. ILARIS [Suspect]
     Active Substance: CANAKINUMAB
     Indication: AUTOINFLAMMATORY DISEASE
     Dosage: 120 MG, EVERY 28 DAYS
     Route: 058
  3. PREDNISONE. [Concomitant]
     Active Substance: PREDNISONE
     Indication: PRODUCT USED FOR UNKNOWN INDICATION
     Dosage: UNK
     Route: 065
     Dates: end: 20180810

REACTIONS (4)
  - Skin reaction [Unknown]
  - Incorrect dose administered [Unknown]
  - Pyrexia [Recovered/Resolved]
  - Pyrexia [Unknown]

NARRATIVE: CASE EVENT DATE: 20180728
